FAERS Safety Report 8216887-0 (Version None)
Quarter: 2012Q1

REPORT INFORMATION
  Report Type: 
  Country: None (occurrence: None)
  Receive Date: 20120316
  Receipt Date: 20120308
  Transmission Date: 20120608
  Serious: Yes (Hospitalization)
  Sender: FDA-Public Use
  Company Number: US-ASTRAZENECA-2012SE16474

PATIENT
  Age: 52 Year
  Sex: Female

DRUGS (1)
  1. PULMICORT [Suspect]
     Dosage: 200 MG
     Route: 055

REACTIONS (2)
  - DRUG DOSE OMISSION [None]
  - ASTHMA [None]
